FAERS Safety Report 17921943 (Version 1)
Quarter: 2020Q2

REPORT INFORMATION
  Report Type: Spontaneous
  Country: US (occurrence: US)
  Receive Date: 20200619
  Receipt Date: 20200619
  Transmission Date: 20200714
  Serious: Yes (Hospitalization)
  Sender: FDA-Public Use
  Company Number: None

PATIENT
  Age: 27 Year
  Sex: Female
  Weight: 92.1 kg

DRUGS (2)
  1. REMDESIVIR VIA EUA [Suspect]
     Active Substance: REMDESIVIR
     Indication: COVID-19
     Route: 040
     Dates: start: 20200609, end: 20200612
  2. PIPERACILLIN AND TAZOBACTAM [Concomitant]
     Active Substance: PIPERACILLIN SODIUM\TAZOBACTAM SODIUM
     Dates: start: 20200608, end: 20200610

REACTIONS (4)
  - Foetal exposure during pregnancy [None]
  - Maternal exposure during pregnancy [None]
  - Liver function test increased [None]
  - Transaminases increased [None]

NARRATIVE: CASE EVENT DATE: 20200613
